FAERS Safety Report 24621247 (Version 1)
Quarter: 2024Q4

REPORT INFORMATION
  Report Type: Spontaneous
  Country: US (occurrence: US)
  Receive Date: 20241114
  Receipt Date: 20241114
  Transmission Date: 20250114
  Serious: No
  Sender: UROGEN PHARMA
  Company Number: US-UROGEN PHARMA LTD.-2024-UGN-000139

PATIENT

DRUGS (6)
  1. JELMYTO [Suspect]
     Active Substance: MITOMYCIN
     Indication: Malignant neoplasm of renal pelvis
     Dosage: 80 MILLIGRAM, ONCE A WEEK  (INSITILLATION)
     Route: 065
     Dates: start: 20240508, end: 20240508
  2. JELMYTO [Suspect]
     Active Substance: MITOMYCIN
     Dosage: 80 MILLIGRAM, ONCE A WEEK  (INSITILLATION)
     Route: 065
     Dates: start: 20240515, end: 20240515
  3. JELMYTO [Suspect]
     Active Substance: MITOMYCIN
     Dosage: 80 MILLIGRAM, ONCE A WEEK  (INSITILLATION)
     Route: 065
     Dates: start: 20240522, end: 20240522
  4. JELMYTO [Suspect]
     Active Substance: MITOMYCIN
     Dosage: 80 MILLIGRAM, ONCE A WEEK  (INSITILLATION)
     Route: 065
     Dates: start: 20240529, end: 20240529
  5. JELMYTO [Suspect]
     Active Substance: MITOMYCIN
     Dosage: 80 MILLIGRAM, ONCE A WEEK  (INSITILLATION)
     Route: 065
     Dates: start: 20240605, end: 20240605
  6. JELMYTO [Suspect]
     Active Substance: MITOMYCIN
     Dosage: 80 MILLIGRAM, ONCE A WEEK  (INSITILLATION)
     Route: 065
     Dates: start: 20240612, end: 20240612

REACTIONS (1)
  - COVID-19 [Unknown]

NARRATIVE: CASE EVENT DATE: 20240101
